FAERS Safety Report 5090504-3 (Version None)
Quarter: 2006Q3

REPORT INFORMATION
  Report Type: 
  Country: None (occurrence: None)
  Receive Date: 20060828
  Receipt Date: 20060518
  Transmission Date: 20061208
  Serious: No
  Sender: FDA-Public Use
  Company Number: US-GLAXOSMITHKLINE-A0606193A

PATIENT
  Age: 47 Year
  Sex: Male

DRUGS (4)
  1. WELLBUTRIN XL [Suspect]
     Indication: DEPRESSION
     Dosage: 300MG PER DAY
     Route: 048
     Dates: start: 20050901, end: 20060517
  2. CYMBALTA [Suspect]
     Indication: FIBROMYALGIA
     Route: 065
  3. ATENOLOL [Concomitant]
  4. VYTORIN [Concomitant]

REACTIONS (6)
  - ABNORMAL DREAMS [None]
  - EYE SWELLING [None]
  - INSOMNIA [None]
  - NIGHT SWEATS [None]
  - PARAESTHESIA [None]
  - PRURITUS [None]
